FAERS Safety Report 15276240 (Version 2)
Quarter: 2018Q3

REPORT INFORMATION
  Report Type: Report from Study
  Country: US (occurrence: US)
  Receive Date: 20180814
  Receipt Date: 20180830
  Transmission Date: 20181010
  Serious: Yes (Other)
  Sender: FDA-Public Use
  Company Number: US-JNJFOC-20180726743

PATIENT
  Age: 57 Year
  Sex: Male

DRUGS (3)
  1. LUTEIN [Concomitant]
     Active Substance: LUTEIN
     Route: 065
  2. STELARA [Suspect]
     Active Substance: USTEKINUMAB
     Indication: PSORIASIS
     Route: 058
     Dates: start: 201712
  3. OMEGA 3                            /01334101/ [Concomitant]
     Active Substance: OMEGA-3 FATTY ACIDS
     Route: 065

REACTIONS (5)
  - Haemorrhoids [Recovered/Resolved]
  - Skin disorder [Unknown]
  - Cellulitis [Recovered/Resolved]
  - Fungal infection [Recovered/Resolved]
  - Arthropod bite [Unknown]

NARRATIVE: CASE EVENT DATE: 2018
